FAERS Safety Report 19422944 (Version 2)
Quarter: 2021Q3

REPORT INFORMATION
  Report Type: Report from Study
  Country: BR (occurrence: BR)
  Receive Date: 20210616
  Receipt Date: 20210809
  Transmission Date: 20211014
  Serious: Yes (Other)
  Sender: FDA-Public Use
  Company Number: NVSC2020BR047436

PATIENT
  Age: 53 Year
  Sex: Female
  Weight: 100 kg

DRUGS (24)
  1. COSENTYX [Suspect]
     Active Substance: SECUKINUMAB
     Dosage: 150 MG, QW
     Route: 058
     Dates: start: 20200227
  2. COSENTYX [Suspect]
     Active Substance: SECUKINUMAB
     Dosage: UNK, QW
     Route: 065
     Dates: start: 20200304
  3. COSENTYX [Suspect]
     Active Substance: SECUKINUMAB
     Dosage: UNK, QMO
     Route: 065
     Dates: start: 20200701
  4. COSENTYX [Suspect]
     Active Substance: SECUKINUMAB
     Dosage: UNK, QMO
     Route: 065
     Dates: start: 20200730
  5. COSENTYX [Suspect]
     Active Substance: SECUKINUMAB
     Dosage: UNK, QMO
     Route: 065
     Dates: start: 20210407
  6. COSENTYX [Suspect]
     Active Substance: SECUKINUMAB
     Indication: PSORIATIC ARTHROPATHY
     Dosage: 150 MG, QW
     Route: 058
     Dates: start: 20200212
  7. COSENTYX [Suspect]
     Active Substance: SECUKINUMAB
     Indication: PSORIASIS
     Dosage: 150 MG, QW
     Route: 058
     Dates: start: 20200220
  8. COSENTYX [Suspect]
     Active Substance: SECUKINUMAB
     Dosage: UNK, QMO
     Route: 065
     Dates: start: 20200506
  9. COSENTYX [Suspect]
     Active Substance: SECUKINUMAB
     Dosage: UNK, QMO
     Route: 065
     Dates: start: 20201216
  10. COSENTYX [Suspect]
     Active Substance: SECUKINUMAB
     Dosage: UNK, QMO
     Route: 065
     Dates: start: 20210310
  11. CORTISON [Concomitant]
     Active Substance: CORTISONE ACETATE
     Indication: PRODUCT USED FOR UNKNOWN INDICATION
     Dosage: UNK
     Route: 065
  12. COSENTYX [Suspect]
     Active Substance: SECUKINUMAB
     Dosage: UNK, QMO
     Route: 065
     Dates: start: 20201118
  13. COSENTYX [Suspect]
     Active Substance: SECUKINUMAB
     Dosage: UNK, QMO
     Route: 065
     Dates: start: 20210505
  14. SYMBICORT [Concomitant]
     Active Substance: BUDESONIDE\FORMOTEROL FUMARATE DIHYDRATE
     Indication: PRODUCT USED FOR UNKNOWN INDICATION
     Dosage: UNK
     Route: 065
  15. COSENTYX [Suspect]
     Active Substance: SECUKINUMAB
     Indication: ANKYLOSING SPONDYLITIS
     Dosage: 150 MG, UNKNOWN
     Route: 065
     Dates: start: 202002
  16. COSENTYX [Suspect]
     Active Substance: SECUKINUMAB
     Dosage: UNK, QW
     Route: 065
     Dates: start: 20200408
  17. COSENTYX [Suspect]
     Active Substance: SECUKINUMAB
     Dosage: UNK, QMO
     Route: 065
     Dates: start: 20200826
  18. COSENTYX [Suspect]
     Active Substance: SECUKINUMAB
     Dosage: UNK, QMO
     Route: 065
     Dates: start: 20200923
  19. COSENTYX [Suspect]
     Active Substance: SECUKINUMAB
     Dosage: UNK, QMO
     Route: 065
     Dates: start: 20210212
  20. COSENTYX [Suspect]
     Active Substance: SECUKINUMAB
     Dosage: UNK, QW
     Route: 065
     Dates: start: 20200311
  21. COSENTYX [Suspect]
     Active Substance: SECUKINUMAB
     Dosage: UNK, QMO
     Route: 065
     Dates: start: 20200605
  22. COSENTYX [Suspect]
     Active Substance: SECUKINUMAB
     Dosage: UNK, QMO
     Route: 065
     Dates: start: 20201021
  23. COSENTYX [Suspect]
     Active Substance: SECUKINUMAB
     Dosage: UNK, QMO
     Route: 065
     Dates: start: 20210113
  24. PREDNISONE. [Concomitant]
     Active Substance: PREDNISONE
     Indication: PRODUCT USED FOR UNKNOWN INDICATION
     Dosage: 20 MG, UNKNOWN
     Route: 065

REACTIONS (58)
  - Psoriatic arthropathy [Not Recovered/Not Resolved]
  - Ear congestion [Recovering/Resolving]
  - Gait disturbance [Recovering/Resolving]
  - Furuncle [Recovered/Resolved]
  - Skin lesion [Unknown]
  - Product dose omission issue [Unknown]
  - Skin reaction [Recovering/Resolving]
  - Acne [Not Recovered/Not Resolved]
  - COVID-19 [Recovered/Resolved]
  - Diarrhoea [Recovered/Resolved]
  - Polymerase chain reaction [Recovered/Resolved]
  - Ankylosing spondylitis [Not Recovered/Not Resolved]
  - Ear pain [Recovered/Resolved]
  - Respiratory disorder [Recovered/Resolved]
  - Decreased immune responsiveness [Recovered/Resolved]
  - Urinary tract infection [Recovered/Resolved]
  - Chills [Recovered/Resolved]
  - Dry throat [Not Recovered/Not Resolved]
  - Crying [Recovering/Resolving]
  - Rash [Recovering/Resolving]
  - Feeling abnormal [Recovering/Resolving]
  - Injection site pain [Recovering/Resolving]
  - Oropharyngeal pain [Recovered/Resolved]
  - Nervousness [Recovered/Resolved]
  - Pharyngitis [Recovered/Resolved]
  - Obstructive airways disorder [Recovering/Resolving]
  - Fear [Recovered/Resolved]
  - Wound [Recovered/Resolved]
  - Pneumonia [Recovered/Resolved]
  - Malaise [Recovered/Resolved]
  - Dysphonia [Not Recovered/Not Resolved]
  - Anxiety [Recovering/Resolving]
  - Headache [Recovered/Resolved]
  - Influenza [Recovering/Resolving]
  - Fatigue [Recovered/Resolved]
  - Ear infection [Recovered/Resolved]
  - Ear swelling [Recovered/Resolved]
  - Bronchitis [Unknown]
  - Chills [Unknown]
  - Nausea [Recovered/Resolved]
  - Muscle tightness [Recovered/Resolved]
  - Dermatitis [Recovering/Resolving]
  - Dyspnoea [Recovered/Resolved]
  - Hypoaesthesia [Recovered/Resolved]
  - Inflammation [Unknown]
  - Psoriasis [Recovering/Resolving]
  - Blood pressure increased [Recovered/Resolved]
  - Pain [Recovered/Resolved]
  - Rhinitis [Recovered/Resolved]
  - Fatigue [Recovered/Resolved]
  - Rash [Recovered/Resolved]
  - Drug ineffective [Recovering/Resolving]
  - Dyspnoea [Recovered/Resolved]
  - Nasal congestion [Recovered/Resolved]
  - Hyperhidrosis [Not Recovered/Not Resolved]
  - Hypertension [Recovering/Resolving]
  - Suspected COVID-19 [Unknown]
  - Pain [Recovered/Resolved]

NARRATIVE: CASE EVENT DATE: 202002
